FAERS Safety Report 15989394 (Version 1)
Quarter: 2019Q1

REPORT INFORMATION
  Report Type: Spontaneous
  Country: US (occurrence: US)
  Receive Date: 20190220
  Receipt Date: 20190220
  Transmission Date: 20190418
  Serious: Yes (Other)
  Sender: FDA-Public Use
  Company Number: None

PATIENT
  Age: 35 Year
  Sex: Female
  Weight: 56.25 kg

DRUGS (1)
  1. MONISTAT 1 COMBINATION PACK TRIPLE ACTION [Suspect]
     Active Substance: MICONAZOLE NITRATE
     Indication: VULVOVAGINAL MYCOTIC INFECTION
     Dosage: ?          QUANTITY:1 CAPSULE(S);OTHER FREQUENCY:ONCE;?
     Route: 067
     Dates: start: 20190218

REACTIONS (6)
  - Application site burn [None]
  - Vulvovaginal pruritus [None]
  - Vulvovaginal pain [None]
  - Vaginal exfoliation [None]
  - Application site erythema [None]
  - Application site swelling [None]

NARRATIVE: CASE EVENT DATE: 20190218
